FAERS Safety Report 9059835 (Version 1)
Quarter: 2013Q1

REPORT INFORMATION
  Report Type: Spontaneous
  Country: US (occurrence: None)
  Receive Date: 20130118
  Receipt Date: 20130118
  Transmission Date: 20140127
  Serious: Yes (Death)
  Sender: FDA-Public Use
  Company Number: AUR-APL-2013-00373

PATIENT
  Age: 57 Year
  Sex: Male

DRUGS (6)
  1. CITALOPRAM (CITALOPRAM) [Suspect]
     Indication: PRODUCT USED FOR UNKNOWN INDICATION
  2. MIRTAZAPINE (MIRTAZAPINE) [Suspect]
  3. MORPHINE [Suspect]
  4. TAPENTADOL [Suspect]
  5. TRAMADOL (TRAMADOL) [Suspect]
  6. AMITRIPTYLINE (AMITRIPTYLINE) [Suspect]

REACTIONS (1)
  - Toxicity to various agents [None]
